FAERS Safety Report 4886997-4 (Version None)
Quarter: 2006Q1

REPORT INFORMATION
  Report Type: 
  Country: None (occurrence: None)
  Receive Date: 20060118
  Receipt Date: 20060105
  Transmission Date: 20060701
  Serious: Yes (Other)
  Sender: FDA-Public Use
  Company Number: 216658

PATIENT
  Age: 59 Year
  Sex: Female

DRUGS (3)
  1. AVASTIN [Suspect]
     Indication: METASTATIC RENAL CELL CARCINOMA
     Dosage: Q2W
  2. ROXICET (OXYCODONE HYDROCHLORIDE, ACETAMINOPHEN) [Concomitant]
  3. LORAZEPAM [Concomitant]

REACTIONS (11)
  - BACTERIA URINE IDENTIFIED [None]
  - BLINDNESS CORTICAL [None]
  - BLOOD PRESSURE INCREASED [None]
  - CSF PROTEIN INCREASED [None]
  - EXTENSOR PLANTAR RESPONSE [None]
  - GRAND MAL CONVULSION [None]
  - HAEMORRHAGIC STROKE [None]
  - LETHARGY [None]
  - REVERSIBLE POSTERIOR LEUKOENCEPHALOPATHY SYNDROME [None]
  - SEPSIS [None]
  - WHITE BLOOD CELLS URINE POSITIVE [None]
